FAERS Safety Report 26209484 (Version 1)
Quarter: 2025Q4

REPORT INFORMATION
  Report Type: Spontaneous
  Country: TR (occurrence: TR)
  Receive Date: 20251229
  Receipt Date: 20251229
  Transmission Date: 20260119
  Serious: Yes (Other)
  Sender: PFIZER
  Company Number: TR-PFIZER INC-202500251614

PATIENT
  Age: 71 Year
  Sex: Female

DRUGS (4)
  1. BEVACIZUMAB [Suspect]
     Active Substance: BEVACIZUMAB
     Indication: Lung neoplasm malignant
     Dosage: UNK
  2. ATEZOLIZUMAB [Suspect]
     Active Substance: ATEZOLIZUMAB
     Indication: Lung neoplasm malignant
     Dosage: UNK
  3. CARBOPLATIN [Suspect]
     Active Substance: CARBOPLATIN
     Indication: Lung neoplasm malignant
     Dosage: UNK
  4. PACLITAXEL [Suspect]
     Active Substance: PACLITAXEL
     Indication: Lung neoplasm malignant
     Dosage: UNK

REACTIONS (1)
  - Encephalitis [Recovered/Resolved]
